FAERS Safety Report 8035890-7 (Version None)
Quarter: 2012Q1

REPORT INFORMATION
  Report Type: 
  Country: None (occurrence: None)
  Receive Date: 20120111
  Receipt Date: 20120111
  Transmission Date: 20120608
  Serious: Yes (Other)
  Sender: FDA-Public Use
  Company Number: None

PATIENT
  Sex: Male
  Weight: 73.935 kg

DRUGS (17)
  1. VITAMIN D [Concomitant]
     Route: 048
  2. PYRIDOXINE HCL [Concomitant]
     Route: 048
  3. PROAIR HFA [Concomitant]
     Route: 048
  4. ROXICODONE [Concomitant]
     Route: 048
  5. VALIUM [Concomitant]
     Route: 048
  6. CYANOCOBALAMIN [Concomitant]
     Route: 048
  7. LEXISCAN [Suspect]
     Indication: CARDIAC STRESS TEST
     Dosage: 0.4 MG
     Route: 042
     Dates: start: 20111230, end: 20111230
  8. ETODOLAC [Concomitant]
     Route: 048
  9. NITROSTAT [Concomitant]
     Route: 060
  10. ASPIRIN [Concomitant]
     Route: 048
  11. MULTIPLE VITAMIN [Concomitant]
     Route: 048
  12. REQUIP [Concomitant]
     Route: 048
  13. PREDNISONE TAB [Concomitant]
  14. ROXICODONE [Concomitant]
     Route: 048
  15. NITROGLYCERIN [Concomitant]
     Route: 048
  16. FLOMAX [Concomitant]
     Route: 048
  17. VITAMIN C [Concomitant]
     Route: 048

REACTIONS (2)
  - COUGH [None]
  - WHEEZING [None]
